FAERS Safety Report 5956850-3 (Version None)
Quarter: 2008Q4

REPORT INFORMATION
  Report Type: 
  Country: None (occurrence: None)
  Receive Date: 20081118
  Receipt Date: 20081106
  Transmission Date: 20090506
  Serious: Yes (Death, Hospitalization)
  Sender: FDA-Public Use
  Company Number: ZA-PFIZER INC-2008094804

PATIENT
  Sex: Female
  Weight: 43 kg

DRUGS (6)
  1. SUTENT [Suspect]
     Indication: GASTROINTESTINAL STROMAL TUMOUR
     Route: 048
     Dates: start: 20080916
  2. MIST CT [Concomitant]
     Route: 048
     Dates: start: 20080916, end: 20081104
  3. MAXOLON [Concomitant]
     Route: 048
     Dates: start: 20080916
  4. SENOKOT [Concomitant]
     Route: 048
     Dates: start: 20080916
  5. PROCHLORPERAZINE [Concomitant]
     Route: 048
     Dates: start: 20081029, end: 20081104
  6. PANADO [Concomitant]
     Route: 048
     Dates: start: 20081029, end: 20081104

REACTIONS (4)
  - AMNESIA [None]
  - CACHEXIA [None]
  - EPISTAXIS [None]
  - FATIGUE [None]
